FAERS Safety Report 8671931 (Version 3)
Quarter: 2013Q3

REPORT INFORMATION
  Report Type: Report from Study
  Country: JP (occurrence: JP)
  Receive Date: 20120718
  Receipt Date: 20130712
  Transmission Date: 20140515
  Serious: Yes (Other)
  Sender: FDA-Public Use
  Company Number: JP-BAYER-2012-069597

PATIENT
  Age: 62 Year
  Sex: Female
  Weight: 50 kg

DRUGS (19)
  1. NEXAVAR [Suspect]
     Indication: HEPATOCELLULAR CARCINOMA
     Dosage: 200 MG/DAY
     Route: 048
     Dates: start: 20111019, end: 20120425
  2. NEXAVAR [Suspect]
     Indication: HEPATOCELLULAR CARCINOMA
     Dosage: 200 MG, QOD
     Route: 048
     Dates: start: 20120426, end: 20120509
  3. OLMETEC [Concomitant]
     Dosage: DAILY DOSE 20 MG
     Route: 048
     Dates: end: 20120117
  4. OLMETEC [Concomitant]
     Dosage: DAILY DOSE 40 MG
     Route: 048
     Dates: start: 20120118
  5. OLMETEC [Concomitant]
     Dosage: DAILY DOSE 40 MG
     Route: 048
     Dates: start: 20120118
  6. OLMETEC [Concomitant]
     Dosage: DAILY DOSE 40 MG
     Route: 048
     Dates: start: 20120118
  7. URSO [Concomitant]
     Dosage: DAILY DOSE 600 MG
     Route: 048
  8. LIVACT [Concomitant]
     Dosage: DAILY DOSE 3 DF
     Route: 048
  9. MYSLEE [Concomitant]
     Dosage: DAILY DOSE 10 MG
     Route: 048
     Dates: end: 20120131
  10. AMINOLEBAN EN [Concomitant]
     Indication: NAIL RIDGING
     Dosage: DAILY DOSE 50 G
     Route: 048
     Dates: end: 20120228
  11. AMINOLEBAN EN [Concomitant]
     Indication: NAIL RIDGING
     Dosage: DAILY DOSE 50 G
     Route: 048
     Dates: start: 20120229
  12. AMINOLEBAN EN [Concomitant]
     Indication: NAIL RIDGING
     Dosage: DAILY DOSE 50 G
     Route: 048
     Dates: start: 20120229
  13. AMINOLEBAN EN [Concomitant]
     Indication: NAIL RIDGING
     Dosage: DAILY DOSE 50 G
     Route: 048
     Dates: start: 20120229
  14. UREPEARL [Concomitant]
     Indication: DRUG TOXICITY PROPHYLAXIS
     Dosage: UNK
     Route: 061
     Dates: end: 20111206
  15. EURAX [Concomitant]
     Dosage: UNK
     Route: 061
     Dates: end: 20111206
  16. ALLEGRA [Concomitant]
     Dosage: DAILY DOSE 120 MG
     Route: 048
     Dates: end: 20111123
  17. LOXONIN [Concomitant]
     Indication: PYREXIA
     Dosage: UNK
     Route: 048
  18. PRIMPERAN [Concomitant]
     Indication: PROPHYLAXIS OF NAUSEA AND VOMITING
     Dosage: DAILY DOSE 15 MG
     Route: 048
     Dates: start: 20120118
  19. LENDORMIN [Concomitant]
     Dosage: DAILY DOSE .25 MG
     Route: 048
     Dates: start: 20120201, end: 20120612

REACTIONS (11)
  - Hepatic function abnormal [Recovered/Resolved]
  - Hepatic encephalopathy [Recovered/Resolved]
  - Hypertension [Recovered/Resolved]
  - Lipase increased [Recovered/Resolved]
  - Amylase increased [Recovered/Resolved]
  - Hypophosphataemia [Recovered/Resolved]
  - Pyrexia [Recovered/Resolved]
  - Palmar-plantar erythrodysaesthesia syndrome [Recovered/Resolved]
  - Diarrhoea [Recovering/Resolving]
  - Nail ridging [Recovering/Resolving]
  - Decreased appetite [Recovered/Resolved]
